FAERS Safety Report 7269144-3 (Version None)
Quarter: 2011Q1

REPORT INFORMATION
  Report Type: 
  Country: None (occurrence: None)
  Receive Date: 20110202
  Receipt Date: 20090602
  Transmission Date: 20110831
  Serious: No
  Sender: FDA-Public Use
  Company Number: 2009BI017188

PATIENT
  Age: 37 Year
  Sex: Female

DRUGS (1)
  1. TYSABRI [Suspect]
     Indication: MULTIPLE SCLEROSIS
     Route: 042
     Dates: start: 20090306

REACTIONS (4)
  - BLOOD IRON DECREASED [None]
  - PYREXIA [None]
  - H1N1 INFLUENZA [None]
  - PLATELET COUNT DECREASED [None]
